FAERS Safety Report 22239528 (Version 1)
Quarter: 2023Q2

REPORT INFORMATION
  Report Type: Spontaneous
  Country: US (occurrence: None)
  Receive Date: 20230419
  Receipt Date: 20230419
  Transmission Date: 20230721
  Serious: Yes (Hospitalization)
  Sender: FDA-Public Use
  Company Number: None

PATIENT
  Sex: Female

DRUGS (3)
  1. OPSUMIT [Suspect]
     Active Substance: MACITENTAN
     Indication: Pulmonary arterial hypertension
     Dosage: 10MG QD ORAL?
     Route: 048
     Dates: start: 202004
  2. TYVASO [Suspect]
     Active Substance: TREPROSTINIL
  3. TADALAFIL [Suspect]
     Active Substance: TADALAFIL

REACTIONS (3)
  - Suicide attempt [None]
  - Gastric disorder [None]
  - Illness [None]
